FAERS Safety Report 4780650-3 (Version None)
Quarter: 2005Q3

REPORT INFORMATION
  Report Type: 
  Country: None (occurrence: None)
  Receive Date: 20050926
  Receipt Date: 20050913
  Transmission Date: 20060218
  Serious: Yes (Hospitalization, Other)
  Sender: FDA-Public Use
  Company Number: 2005117137

PATIENT
  Sex: Female

DRUGS (7)
  1. XALATAN [Suspect]
     Indication: GLAUCOMA
     Dosage: 1 DROP EACH EYE (1.5 MCG, DAILY), OPHTHALMIC
     Route: 047
  2. VITAMIN A (NATURAL) CAP [Concomitant]
  3. VITAMIN C (VITAMIN C) [Concomitant]
  4. VITAMIN E [Concomitant]
  5. CALCIUM (CALCIUM) [Concomitant]
  6. OCUVITE (ASCORBIC ACID, RETINOL, TOCOPHEROL) [Concomitant]
  7. TIMOPTIC [Concomitant]

REACTIONS (10)
  - CONVULSION [None]
  - DENTAL CARIES [None]
  - DIZZINESS [None]
  - DYSPEPSIA [None]
  - EYE DISORDER [None]
  - FEELING ABNORMAL [None]
  - HYPERTENSION [None]
  - INCORRECT DOSE ADMINISTERED [None]
  - NERVOUSNESS [None]
  - TOOTH EXTRACTION [None]
